FAERS Safety Report 4633905-7 (Version None)
Quarter: 2005Q2

REPORT INFORMATION
  Report Type: 
  Country: None (occurrence: None)
  Receive Date: 20050407
  Receipt Date: 20050324
  Transmission Date: 20051028
  Serious: Yes (Hospitalization)
  Sender: FDA-Public Use
  Company Number: 05P-028-0295517-00

PATIENT
  Age: 83 Year
  Sex: Male
  Weight: 73.9363 kg

DRUGS (3)
  1. MAVIK [Suspect]
     Indication: HYPERTENSION
     Dosage: 4 MG, 1 IN 1 D, ORAL
     Route: 048
  2. ACETYL SALICYLIC ACID USP BAT [Concomitant]
  3. FLOMAX [Concomitant]

REACTIONS (7)
  - ATRIAL FIBRILLATION [None]
  - CEREBRAL ATROPHY [None]
  - CEREBRAL ISCHAEMIA [None]
  - DRUG INEFFECTIVE [None]
  - SYNCOPE [None]
  - VENTRICULAR EXTRASYSTOLES [None]
  - VISUAL DISTURBANCE [None]
